FAERS Safety Report 17907232 (Version 1)
Quarter: 2020Q2

REPORT INFORMATION
  Report Type: Spontaneous
  Country: US (occurrence: US)
  Receive Date: 20200617
  Receipt Date: 20200617
  Transmission Date: 20200714
  Serious: Yes (Other)
  Sender: FDA-Public Use
  Company Number: None

PATIENT
  Age: 39 Year
  Sex: Male
  Weight: 75 kg

DRUGS (17)
  1. REMDESIVIR. [Suspect]
     Active Substance: REMDESIVIR
     Indication: COVID-19
     Dates: start: 20200612
  2. ASPIRIN 81 MG PO DAILY [Concomitant]
     Dates: start: 20200613
  3. CETTRIAXONE 19 IV DAILY [Concomitant]
     Dates: start: 20200613
  4. FAMOTIDINE 20 MG PO BID [Concomitant]
     Dates: start: 20200613
  5. DEXMEDETOMIDINE LV CONT INFUSION [Concomitant]
  6. CHLORHEXIDINE 0.12% MOUTHWASH 15ML [Concomitant]
     Dates: start: 20200613
  7. METOCLOPRAMIDE 5 MG IV Q8H [Concomitant]
  8. DEXAMETHASONE 6 MG LV DAILY [Concomitant]
     Dates: start: 20200616
  9. INSULIN CONTINUOUS INFUSION [Concomitant]
  10. FENTANYL CONTINUOUS INFUSION [Concomitant]
     Active Substance: FENTANYL
  11. MVI [Concomitant]
     Active Substance: VITAMINS
     Dates: start: 20200613
  12. HEPARIN CONTINUE INFUSION [Concomitant]
  13. FUROSEMIDE 20 MG IV Q8H [Concomitant]
     Dates: start: 20200617
  14. SENNA DOCUSATE PO BID [Concomitant]
     Dates: start: 20200616
  15. ARTIFICIAL TEARS [Concomitant]
     Active Substance: GLYCERIN\HYPROMELLOSES\POLYETHYLENE GLYCOL 400
     Dates: start: 20200613
  16. VANCOMYCIN LV [Concomitant]
     Dates: start: 20200613, end: 20200617
  17. MIDAZOLAM CONTINUOUS INFUSION [Concomitant]

REACTIONS (2)
  - Aspartate aminotransferase increased [None]
  - Alanine aminotransferase increased [None]

NARRATIVE: CASE EVENT DATE: 20200617
